FAERS Safety Report 16442890 (Version 1)
Quarter: 2019Q2

REPORT INFORMATION
  Report Type: Spontaneous
  Country: US (occurrence: US)
  Receive Date: 20190617
  Receipt Date: 20190617
  Transmission Date: 20190711
  Serious: No
  Sender: FDA-Public Use
  Company Number: US-BIOMARINAP-US-2019-124142

PATIENT
  Sex: Female
  Weight: 68.93 kg

DRUGS (1)
  1. KUVAN [Suspect]
     Active Substance: SAPROPTERIN DIHYDROCHLORIDE
     Indication: PHENYLKETONURIA
     Dosage: 1600 MILLIGRAM, QD
     Route: 065

REACTIONS (4)
  - Migraine [Unknown]
  - Mood altered [Unknown]
  - Insomnia [Unknown]
  - Feeling abnormal [Unknown]
